FAERS Safety Report 10208519 (Version 1)
Quarter: 2014Q2

REPORT INFORMATION
  Report Type: Spontaneous
  Country: MY (occurrence: MY)
  Receive Date: 20140530
  Receipt Date: 20140530
  Transmission Date: 20141212
  Serious: Yes (Other)
  Sender: FDA-Public Use
  Company Number: MY-GLAXOSMITHKLINE-B0998163A

PATIENT
  Age: 74 Year
  Sex: Female

DRUGS (9)
  1. ARIXTRA [Suspect]
     Indication: ACUTE MYOCARDIAL INFARCTION
     Dosage: 2MG PER DAY
     Route: 058
  2. INSULIN [Concomitant]
  3. CEFTRIAXONE [Concomitant]
  4. POTASSIUM CHLORIDE [Concomitant]
  5. SIMVASTATIN [Concomitant]
  6. ASPIRIN [Concomitant]
  7. CLOPIDOGREL [Concomitant]
  8. INSULIN [Concomitant]
  9. CHLORPHENIRAMINE [Concomitant]

REACTIONS (2)
  - Angioedema [Recovered/Resolved]
  - Pruritus [Unknown]
